FAERS Safety Report 15413709 (Version 2)
Quarter: 2018Q4

REPORT INFORMATION
  Report Type: Spontaneous
  Country: US (occurrence: US)
  Receive Date: 20180921
  Receipt Date: 20181004
  Transmission Date: 20190204
  Serious: Yes (Death, Other)
  Sender: FDA-Public Use
  Company Number: PHHY2018US100219

PATIENT
  Sex: Male

DRUGS (5)
  1. TACROLIMUS. [Concomitant]
     Active Substance: TACROLIMUS
     Indication: GRAFT VERSUS HOST DISEASE IN SKIN
     Dosage: UNK
     Route: 065
  2. CYTARABINE. [Suspect]
     Active Substance: CYTARABINE
     Indication: CHRONIC MYELOID LEUKAEMIA TRANSFORMATION
     Dosage: UNK
     Route: 065
  3. GRANULOCYTE COLONY STIMULATING FACTOR [Suspect]
     Active Substance: GRANULOCYTE COLONY-STIMULATING FACTOR NOS
     Indication: CHRONIC MYELOID LEUKAEMIA TRANSFORMATION
     Dosage: UNK
     Route: 065
  4. 2-CHLORODEOXYADENOSINE [Suspect]
     Active Substance: CLADRIBINE
     Indication: CHRONIC MYELOID LEUKAEMIA TRANSFORMATION
     Dosage: UNK
     Route: 065
  5. SIROLIMUS. [Concomitant]
     Active Substance: SIROLIMUS
     Indication: GRAFT VERSUS HOST DISEASE IN SKIN
     Dosage: UNK
     Route: 065

REACTIONS (9)
  - Asthenia [Recovered/Resolved]
  - Pyrexia [Recovered/Resolved]
  - Eccrine squamous syringometaplasia [Recovered/Resolved]
  - Product use in unapproved indication [Unknown]
  - Chronic myeloid leukaemia transformation [Fatal]
  - Rash [Recovered/Resolved]
  - Fatigue [Recovered/Resolved]
  - Recurrent cancer [Fatal]
  - Pruritus [Recovered/Resolved]
